FAERS Safety Report 8883289 (Version 5)
Quarter: 2013Q1

REPORT INFORMATION
  Report Type: Spontaneous
  Country: US (occurrence: US)
  Receive Date: 20121102
  Receipt Date: 20130306
  Transmission Date: 20140127
  Serious: Yes (Hospitalization, Other)
  Sender: FDA-Public Use
  Company Number: US-009507513-1210USA010177

PATIENT
  Sex: Female
  Weight: 62.13 kg

DRUGS (3)
  1. FOSAMAX [Suspect]
     Indication: OSTEOPOROSIS
     Dosage: 70 MG, UNK
     Route: 048
     Dates: start: 2001, end: 20080310
  2. ALENDRONATE SODIUM [Suspect]
     Indication: OSTEOPOROSIS
     Dosage: 70 MG, UNK
     Route: 048
     Dates: start: 2008, end: 201104
  3. ALENDRONATE SODIUM [Suspect]
     Dosage: 70 MG, QW
     Route: 048
     Dates: end: 20130205

REACTIONS (13)
  - Femur fracture [Unknown]
  - Intramedullary rod insertion [Unknown]
  - Wrist fracture [Unknown]
  - Dental implantation [Unknown]
  - Vitamin D deficiency [Unknown]
  - Hypertension [Unknown]
  - Hyperlipidaemia [Unknown]
  - Ligament sprain [Unknown]
  - Gait disturbance [Unknown]
  - Fall [Unknown]
  - Large intestine polyp [Unknown]
  - Myalgia [Unknown]
  - Rash papular [Unknown]
